FAERS Safety Report 8069968-9 (Version None)
Quarter: 2012Q1

REPORT INFORMATION
  Report Type: 
  Country: None (occurrence: None)
  Receive Date: 20120125
  Receipt Date: 20120119
  Transmission Date: 20120608
  Serious: Yes (Death)
  Sender: FDA-Public Use
  Company Number: JP-ASTELLAS-2012JP000463

PATIENT
  Age: 76 Year
  Sex: Female

DRUGS (12)
  1. LYRICA [Concomitant]
     Dosage: 100 MG, UNKNOWN/D
     Route: 048
  2. PROGRAF [Suspect]
     Indication: RHEUMATOID ARTHRITIS
     Dosage: 1 MG, UNKNOWN/D
     Route: 048
     Dates: start: 20100511, end: 20111227
  3. LUVOX [Concomitant]
     Dosage: 25 MG, UNKNOWN/D
     Route: 048
  4. PREDNISOLONE [Concomitant]
     Dosage: 10 MG, UNKNOWN/D
     Route: 048
  5. DIOVAN [Concomitant]
     Dosage: 80 MG, UNKNOWN/D
     Route: 048
  6. NIVADIL [Concomitant]
     Dosage: 4 MG, UNKNOWN/D
     Route: 048
  7. EDIROL [Concomitant]
     Dosage: 0.75 UG, UNKNOWN/D
     Route: 048
  8. PLAVIX [Concomitant]
     Dosage: 75 MG, UNKNOWN/D
     Route: 048
  9. TRAMADOL HCL [Concomitant]
     Dosage: 2 DF, UNKNOWN/D
     Route: 048
  10. LANSOPRAZOLE [Concomitant]
     Dosage: 15 MG, UNKNOWN/D
     Route: 048
  11. INDAPAMIDE [Concomitant]
     Dosage: 0.25 MG, UNKNOWN/D
     Route: 048
  12. DEPAS [Concomitant]
     Dosage: 0.5 MG, UNKNOWN/D
     Route: 048

REACTIONS (1)
  - HEPATITIS C [None]
